FAERS Safety Report 5894272-4 (Version None)
Quarter: 2008Q3

REPORT INFORMATION
  Report Type: 
  Country: None (occurrence: None)
  Receive Date: 20080923
  Receipt Date: 20080328
  Transmission Date: 20090109
  Serious: No
  Sender: FDA-Public Use
  Company Number: US-ASTRAZENECA-2008UW06269

PATIENT
  Age: 48 Year
  Sex: Female

DRUGS (3)
  1. SEROQUEL [Suspect]
     Dosage: 900 MG
     Route: 048
  2. DEPAKOTE [Concomitant]
     Dosage: 1500 MG
  3. XANAX [Concomitant]
     Dosage: 2 MG

REACTIONS (2)
  - DIABETES MELLITUS [None]
  - METABOLIC SYNDROME [None]
